FAERS Safety Report 8564202-5 (Version None)
Quarter: 2012Q3

REPORT INFORMATION
  Report Type: 
  Country: None (occurrence: None)
  Receive Date: 20120803
  Receipt Date: 20120801
  Transmission Date: 20120928
  Serious: No
  Sender: FDA-Public Use
  Company Number: US-B.I. PHARMACEUTICALS,INC./RIDGEFIELD-2012-BP-17354BP

PATIENT
  Age: 57 Year
  Sex: Female

DRUGS (2)
  1. TRADJENTA [Suspect]
     Indication: TYPE 2 DIABETES MELLITUS
     Dosage: 5 MG
     Route: 048
     Dates: start: 20120626, end: 20120731
  2. ACE INHIBITOR [Concomitant]
     Indication: HYPERTENSION

REACTIONS (3)
  - WEIGHT DECREASED [None]
  - NAUSEA [None]
  - ABDOMINAL DISCOMFORT [None]
